FAERS Safety Report 8344387-6 (Version None)
Quarter: 2012Q2

REPORT INFORMATION
  Report Type: 
  Country: None (occurrence: None)
  Receive Date: 20120508
  Receipt Date: 20120423
  Transmission Date: 20120825
  Serious: Yes (Other)
  Sender: FDA-Public Use
  Company Number: MY-JHP PHARMACEUTICALS, LLC-JHP201200232

PATIENT
  Age: 26 Year
  Sex: Male

DRUGS (1)
  1. KETALAR [Suspect]
     Indication: DRUG ABUSE

REACTIONS (4)
  - UROSEPSIS [None]
  - ATONIC URINARY BLADDER [None]
  - HYDRONEPHROSIS [None]
  - HEPATIC CIRRHOSIS [None]
